FAERS Safety Report 6050553-5 (Version None)
Quarter: 2009Q1

REPORT INFORMATION
  Report Type: 
  Country: None (occurrence: None)
  Receive Date: 20090126
  Receipt Date: 20090120
  Transmission Date: 20090719
  Serious: Yes (Life-Threatening, Hospitalization, Other)
  Sender: FDA-Public Use
  Company Number: GB-BAYER-200813422BNE

PATIENT
  Age: 50 Year
  Sex: Female

DRUGS (6)
  1. FLUDARABINE PHOSPHATE [Suspect]
     Indication: GASTRIC CANCER
     Route: 042
     Dates: start: 20081120, end: 20081124
  2. MFEZ T CELLS [Suspect]
     Indication: GASTRIC CANCER
     Route: 042
     Dates: start: 20081125, end: 20081125
  3. PROLEUKIN [Suspect]
     Indication: GASTRIC CANCER
     Route: 042
     Dates: start: 20081125, end: 20081125
  4. PROLEUKIN [Suspect]
     Route: 042
     Dates: start: 20081126, end: 20081126
  5. PROLEUKIN [Suspect]
     Route: 042
     Dates: start: 20081127, end: 20081127
  6. INTRAVENOUS FLUID SUPPORT WITH GELOFUSION [Concomitant]

REACTIONS (14)
  - EPISTAXIS [None]
  - FATIGUE [None]
  - HAEMORRHAGE INTRACRANIAL [None]
  - HYPOTENSION [None]
  - LIVER FUNCTION TEST ABNORMAL [None]
  - LOWER RESPIRATORY TRACT INFECTION [None]
  - LUNG CONSOLIDATION [None]
  - MOBILITY DECREASED [None]
  - MUSCULAR WEAKNESS [None]
  - NEUTROPENIC SEPSIS [None]
  - PLATELET COUNT DECREASED [None]
  - PLEURAL EFFUSION [None]
  - PNEUMOTHORAX [None]
  - PULMONARY OEDEMA [None]
